FAERS Safety Report 5272118-5 (Version None)
Quarter: 2007Q1

REPORT INFORMATION
  Report Type: 
  Country: None (occurrence: None)
  Receive Date: 20070320
  Receipt Date: 20070320
  Transmission Date: 20070707
  Serious: Yes (Other)
  Sender: FDA-Public Use
  Company Number: None

PATIENT
  Age: 66 Year
  Sex: Male

DRUGS (8)
  1. MYOVIEW [Suspect]
     Indication: SCAN MYOCARDIAL PERFUSION
     Dosage: 38.9 MCI ONCE IV BOLUS
     Route: 040
     Dates: start: 20061117, end: 20061117
  2. ADENOSINE [Suspect]
     Indication: CARDIAC STRESS TEST
     Dosage: 65 MG ONCE IV BOLUS    1 DOSE
     Route: 040
  3. HEPARIN [Concomitant]
  4. CEFAZOLIN [Concomitant]
  5. FENTANYL [Concomitant]
  6. MIDAZOLAM HCL [Concomitant]
  7. CEFAZOLIN [Concomitant]
  8. THALLIUM [Concomitant]

REACTIONS (6)
  - DIARRHOEA [None]
  - FATIGUE [None]
  - HEPATITIS C [None]
  - PYREXIA [None]
  - VENTRICULAR TACHYCARDIA [None]
  - VIRAL INFECTION [None]
